FAERS Safety Report 5487245-7 (Version None)
Quarter: 2007Q3

REPORT INFORMATION
  Report Type: 
  Country: None (occurrence: None)
  Receive Date: 20070925
  Receipt Date: 20070724
  Transmission Date: 20080115
  Serious: No
  Sender: FDA-Public Use
  Company Number: 2007US001713

PATIENT
  Age: 61 Year
  Sex: Female

DRUGS (3)
  1. VESICARE [Suspect]
     Indication: POLLAKIURIA
     Dosage: 5 MG
     Dates: start: 20070711
  2. TOPROL-XL [Concomitant]
  3. CADUET (AMLODIPINE BESILATE, ATORVASTATIN CALCIUM) [Concomitant]

REACTIONS (1)
  - DRUG INEFFECTIVE [None]
